FAERS Safety Report 22305699 (Version 1)
Quarter: 2023Q2

REPORT INFORMATION
  Report Type: Spontaneous
  Country: US (occurrence: US)
  Receive Date: 20230510
  Receipt Date: 20230510
  Transmission Date: 20230721
  Serious: Yes (Other)
  Sender: FDA-Public Use
  Company Number: US-JNJFOC-20230503753

PATIENT
  Age: 10 Year
  Sex: Male

DRUGS (2)
  1. RISPERDAL [Suspect]
     Active Substance: RISPERIDONE
     Indication: Tourette^s disorder
     Dosage: VARYING DOSES OF 0.25, 0.5, 0.75 AND 1 MG IN VARYING FREQUENCIES OF THRICE DAILY, AND TWICE DAILY
     Route: 048
  2. RISPERDAL [Suspect]
     Active Substance: RISPERIDONE
     Indication: Obsessive-compulsive disorder
     Dosage: 0.5 MG IN THE MORNING AND 1 MG AT NIGHT
     Route: 048
     Dates: end: 2013

REACTIONS (5)
  - Gynaecomastia [Unknown]
  - Increased appetite [Unknown]
  - Weight increased [Recovering/Resolving]
  - Anxiety [Unknown]
  - Off label use [Unknown]

NARRATIVE: CASE EVENT DATE: 20090101
